FAERS Safety Report 9367842 (Version 4)
Quarter: 2018Q1

REPORT INFORMATION
  Report Type: Report from Study
  Country: US (occurrence: US)
  Receive Date: 20130625
  Receipt Date: 20180319
  Transmission Date: 20180509
  Serious: Yes (Death, Life-Threatening, Hospitalization)
  Sender: FDA-Public Use
  Company Number: US-CELGENEUS-163-21880-13063350

PATIENT
  Age: 69 Year
  Sex: Male

DRUGS (1)
  1. REVLIMID [Suspect]
     Active Substance: LENALIDOMIDE
     Indication: CHRONIC LYMPHOCYTIC LEUKAEMIA
     Dosage: 5 MILLIGRAM
     Route: 048
     Dates: start: 20110314, end: 20110630

REACTIONS (2)
  - Chronic lymphocytic leukaemia [Fatal]
  - Septic shock [Fatal]

NARRATIVE: CASE EVENT DATE: 20111207
